FAERS Safety Report 4440985-0 (Version None)
Quarter: 2004Q3

REPORT INFORMATION
  Report Type: 
  Country: None (occurrence: None)
  Receive Date: 20040728
  Receipt Date: 20040415
  Transmission Date: 20050211
  Serious: No
  Sender: FDA-Public Use
  Company Number: USA040465076

PATIENT
  Age: 8 Year
  Sex: Male

DRUGS (1)
  1. STRATTERA [Suspect]
     Indication: ATTENTION DEFICIT/HYPERACTIVITY DISORDER
     Dosage: 1.4 MG/KG DAY

REACTIONS (4)
  - DEPRESSION [None]
  - HALLUCINATION, AUDITORY [None]
  - INSOMNIA [None]
  - SUICIDAL IDEATION [None]
